FAERS Safety Report 18036977 (Version 1)
Quarter: 2020Q3

REPORT INFORMATION
  Report Type: Spontaneous
  Country: JP (occurrence: JP)
  Receive Date: 20200717
  Receipt Date: 20200717
  Transmission Date: 20201103
  Serious: Yes (Other)
  Sender: FDA-Public Use
  Company Number: NVSJ2020JP006085

PATIENT
  Age: 40 Year
  Sex: Male

DRUGS (3)
  1. PARLODEL LAR [Suspect]
     Active Substance: BROMOCRIPTINE MESYLATE
     Dosage: 2.5 MG
     Route: 048
     Dates: start: 20200624, end: 20200626
  2. PARLODEL LAR [Suspect]
     Active Substance: BROMOCRIPTINE MESYLATE
     Indication: NEUROLEPTIC MALIGNANT SYNDROME
     Dosage: 7.5 MG
     Route: 048
     Dates: start: 20200612, end: 20200618
  3. PARLODEL LAR [Suspect]
     Active Substance: BROMOCRIPTINE MESYLATE
     Dosage: 5 MG
     Route: 048
     Dates: start: 20200621, end: 20200623

REACTIONS (1)
  - Neuroleptic malignant syndrome [Recovered/Resolved]
